FAERS Safety Report 11471413 (Version 2)
Quarter: 2015Q3

REPORT INFORMATION
  Report Type: Spontaneous
  Country: US (occurrence: US)
  Receive Date: 20150903
  Receipt Date: 20150903
  Transmission Date: 20151125
  Serious: No
  Sender: FDA-Public Use
  Company Number: US-ELI_LILLY_AND_COMPANY-US201202004894

PATIENT
  Age: 65 Year
  Sex: Male

DRUGS (1)
  1. CYMBALTA [Suspect]
     Active Substance: DULOXETINE HYDROCHLORIDE
     Indication: ARTHRITIS
     Dosage: 60 MG, QD

REACTIONS (8)
  - Fluid intake reduced [Unknown]
  - Feeling abnormal [Unknown]
  - Decreased activity [Unknown]
  - Decreased appetite [Unknown]
  - Urine output decreased [Unknown]
  - Dizziness [Unknown]
  - Diarrhoea [Unknown]
  - Abdominal pain [Unknown]
